FAERS Safety Report 6192516-5 (Version None)
Quarter: 2009Q2

REPORT INFORMATION
  Report Type: 
  Country: None (occurrence: None)
  Receive Date: 20090518
  Receipt Date: 20090508
  Transmission Date: 20091009
  Serious: Yes (Disabling, Other)
  Sender: FDA-Public Use
  Company Number: PHEH2007US12807

PATIENT
  Sex: Male
  Weight: 80.726 kg

DRUGS (5)
  1. AREDIA [Suspect]
     Dosage: UNK
  2. ZOMETA [Suspect]
     Indication: MULTIPLE MYELOMA
     Dosage: UNK
  3. CHLORHEXIDINE GLUCONATE [Concomitant]
     Dosage: 0.12% BID
  4. VITAMIN D [Concomitant]
     Dosage: UNK
     Dates: start: 20080101
  5. PREDNISONE [Concomitant]

REACTIONS (21)
  - ANHEDONIA [None]
  - ANXIETY [None]
  - ARTHRALGIA [None]
  - BLOOD PRESSURE INCREASED [None]
  - DEAFNESS [None]
  - DEFORMITY [None]
  - DIABETES MELLITUS [None]
  - DISCOMFORT [None]
  - DYSPNOEA EXERTIONAL [None]
  - EMOTIONAL DISTRESS [None]
  - HEADACHE [None]
  - HYPOPHAGIA [None]
  - INFECTION [None]
  - INJURY [None]
  - INTERVERTEBRAL DISC PROTRUSION [None]
  - OSTEOARTHRITIS [None]
  - OSTEONECROSIS [None]
  - PAIN [None]
  - PAIN IN JAW [None]
  - STEM CELL TRANSPLANT [None]
  - TOOTH EXTRACTION [None]
